FAERS Safety Report 15372337 (Version 3)
Quarter: 2018Q4

REPORT INFORMATION
  Report Type: Report from Study
  Country: CA (occurrence: CA)
  Receive Date: 20180911
  Receipt Date: 20181031
  Transmission Date: 20190204
  Serious: Yes (Other)
  Sender: FDA-Public Use
  Company Number: CA-GILEAD-2018-0362034

PATIENT
  Age: 61 Year
  Sex: Male

DRUGS (2)
  1. SOFOSBUVIR W/VELPATASVIR/VOXILAPREVIR [Suspect]
     Active Substance: SOFOSBUVIR\VELPATASVIR\VOXILAPREVIR
     Indication: CHRONIC HEPATITIS C
     Dosage: 1 UNK
     Route: 048
     Dates: start: 20180824, end: 20180830
  2. INDAPAMIDE. [Concomitant]
     Active Substance: INDAPAMIDE
     Indication: HYPERTENSION
     Dosage: 1.25 MG, QD
     Route: 048
     Dates: start: 2018

REACTIONS (6)
  - Drug ineffective [Not Recovered/Not Resolved]
  - Tremor [Unknown]
  - Hepatic cirrhosis [Not Recovered/Not Resolved]
  - Liver injury [Not Recovered/Not Resolved]
  - Blood creatinine increased [Unknown]
  - Encephalopathy [Unknown]

NARRATIVE: CASE EVENT DATE: 20180830
